FAERS Safety Report 4916623-7 (Version None)
Quarter: 2006Q1

REPORT INFORMATION
  Report Type: 
  Country: None (occurrence: None)
  Receive Date: 20060220
  Receipt Date: 20060216
  Transmission Date: 20060701
  Serious: Yes (Life-Threatening, Hospitalization)
  Sender: FDA-Public Use
  Company Number: FR-GLAXOSMITHKLINE-B0412593A

PATIENT
  Age: 62 Year
  Sex: Male

DRUGS (9)
  1. AMOXICILLIN TRIHYDRATE [Suspect]
     Indication: INTERVERTEBRAL DISCITIS
     Dosage: 3UNIT PER DAY
     Route: 048
     Dates: start: 20050916, end: 20051029
  2. BACTRIM [Suspect]
     Indication: INTERVERTEBRAL DISCITIS
     Dosage: 6UNIT PER DAY
     Route: 048
     Dates: start: 20050916
  3. DUPHALAC [Concomitant]
     Dosage: 2UNIT PER DAY
     Route: 048
  4. GLUCOPHAGE [Concomitant]
     Dosage: 3UNIT PER DAY
     Route: 048
  5. PREVISCAN [Concomitant]
     Dosage: .75UNIT PER DAY
     Route: 048
  6. IMOVANE [Concomitant]
     Dosage: 1UNIT PER DAY
     Route: 048
  7. ROCEPHIN [Concomitant]
     Indication: URINARY TRACT INFECTION
     Route: 065
  8. RIFADIN [Concomitant]
     Indication: ESCHERICHIA SEPSIS
  9. OFLOCET [Concomitant]
     Indication: ESCHERICHIA SEPSIS

REACTIONS (3)
  - PANCYTOPENIA [None]
  - RENAL FAILURE ACUTE [None]
  - URINARY TRACT INFECTION [None]
